FAERS Safety Report 6523318-5 (Version None)
Quarter: 2009Q4

REPORT INFORMATION
  Report Type: 
  Country: None (occurrence: None)
  Receive Date: 20091231
  Receipt Date: 20091222
  Transmission Date: 20100525
  Serious: Yes (Disabling)
  Sender: FDA-Public Use
  Company Number: JP-ASTRAZENECA-2009SE27754

PATIENT
  Age: 20469 Day
  Sex: Female
  Weight: 41 kg

DRUGS (11)
  1. ARIMIDEX [Suspect]
     Indication: BREAST CANCER
     Route: 048
     Dates: start: 20081121
  2. ABILIFY [Suspect]
     Route: 048
     Dates: start: 20090817
  3. DORAL [Suspect]
     Indication: INSOMNIA
     Route: 048
     Dates: start: 20090928, end: 20091005
  4. HEAVY MAGNESIUM OXIDE [Concomitant]
     Indication: CONSTIPATION
     Route: 048
     Dates: start: 20090406
  5. SENNOSIDE [Concomitant]
     Indication: CONSTIPATION
     Route: 048
     Dates: start: 20090707
  6. ROHYPNOL [Concomitant]
     Indication: INSOMNIA
     Route: 048
     Dates: start: 20090707
  7. WINTERMIN [Concomitant]
     Indication: INSOMNIA
     Route: 048
     Dates: start: 20090707
  8. PHENOBARBITAL [Concomitant]
     Indication: INSOMNIA
     Route: 048
     Dates: start: 20090707
  9. HIBERNA [Concomitant]
     Indication: INSOMNIA
     Route: 048
     Dates: start: 20090707
  10. AKINETON [Concomitant]
     Indication: PARKINSONISM
     Route: 048
     Dates: start: 20090707
  11. RISPERDAL [Concomitant]
     Indication: SCHIZOPHRENIA
     Route: 048
     Dates: start: 20090916

REACTIONS (2)
  - ALTERED STATE OF CONSCIOUSNESS [None]
  - SEDATION [None]
